FAERS Safety Report 7526063-2 (Version None)
Quarter: 2011Q2

REPORT INFORMATION
  Report Type: 
  Country: None (occurrence: None)
  Receive Date: 20110603
  Receipt Date: 20110603
  Transmission Date: 20111010
  Serious: Yes (Hospitalization)
  Sender: FDA-Public Use
  Company Number: None

PATIENT
  Age: 65 Year
  Sex: Female
  Weight: 111.4 kg

DRUGS (9)
  1. PANITUMUMAB 200MG AMGEN [Suspect]
     Indication: RECTAL CANCER METASTATIC
     Dosage: 6MG/KG/2HRS QOWEEK
     Dates: start: 20110415, end: 20110512
  2. LORTAB [Concomitant]
  3. AMBIEN [Concomitant]
  4. ALBUTEROL [Concomitant]
  5. RITALIN [Concomitant]
  6. PERCOCET [Concomitant]
  7. DECITABINE [Suspect]
     Indication: RECTAL CANCER METASTATIC
     Dosage: 45MG/M2/1HR Q0 WEEK
     Dates: start: 20110408, end: 20110505
  8. VIT B12 [Concomitant]
  9. OXYBUTYNIN [Concomitant]

REACTIONS (11)
  - NEUROPATHY PERIPHERAL [None]
  - WEIGHT DECREASED [None]
  - HYPOMAGNESAEMIA [None]
  - FATIGUE [None]
  - GASTROINTESTINAL HAEMORRHAGE [None]
  - PNEUMONIA [None]
  - DECREASED APPETITE [None]
  - HYPOCALCAEMIA [None]
  - HAEMOPTYSIS [None]
  - PHOTOSENSITIVITY REACTION [None]
  - MUCOSAL INFLAMMATION [None]
